FAERS Safety Report 21925280 (Version 1)
Quarter: 2023Q1

REPORT INFORMATION
  Report Type: Spontaneous
  Country: US (occurrence: None)
  Receive Date: 20230127
  Receipt Date: 20230127
  Transmission Date: 20230417
  Serious: No
  Sender: FDA-Public Use
  Company Number: None

PATIENT
  Sex: Male

DRUGS (1)
  1. TREMFYA [Suspect]
     Active Substance: GUSELKUMAB
     Indication: Psoriasis
     Dosage: OTHER QUANTITY : 100MG/1ML;?OTHER FREQUENCY : EVERY 8 WEEKS;?OTHER ROUTE : INJECTION ;?
     Route: 050
     Dates: start: 202111

REACTIONS (1)
  - Drug ineffective [None]
